FAERS Safety Report 5687991-6 (Version None)
Quarter: 2008Q1

REPORT INFORMATION
  Report Type: 
  Country: None (occurrence: None)
  Receive Date: 20080328
  Receipt Date: 20061019
  Transmission Date: 20080703
  Serious: No
  Sender: FDA-Public Use
  Company Number: US-BAYER-US-2006-032340

PATIENT
  Age: 53 Year
  Sex: Female
  Weight: 84 kg

DRUGS (3)
  1. MIRENA [Suspect]
     Indication: HYPERPLASIA
     Route: 015
     Dates: start: 20061016, end: 20061019
  2. ALBUTEROL [Concomitant]
  3. PROVENTIL [Concomitant]

REACTIONS (1)
  - URTICARIA [None]
